FAERS Safety Report 25709459 (Version 1)
Quarter: 2025Q3

REPORT INFORMATION
  Report Type: Spontaneous
  Country: CA (occurrence: CA)
  Receive Date: 20250821
  Receipt Date: 20250821
  Transmission Date: 20251021
  Serious: Yes (Other)
  Sender: REGENERON
  Company Number: CA-BAYER-2025A092814

PATIENT
  Age: 77 Year

DRUGS (1)
  1. EYLEA [Suspect]
     Active Substance: AFLIBERCEPT
     Indication: Product used for unknown indication

REACTIONS (1)
  - Neoplasm malignant [Not Recovered/Not Resolved]
